FAERS Safety Report 9632670 (Version 2)
Quarter: 2013Q4

REPORT INFORMATION
  Report Type: Spontaneous
  Country: US (occurrence: US)
  Receive Date: 20131018
  Receipt Date: 20131122
  Transmission Date: 20140711
  Serious: Yes (Hospitalization)
  Sender: FDA-Public Use
  Company Number: US-FRI-1000050087

PATIENT
  Age: 98 Year
  Sex: Female

DRUGS (6)
  1. NAMENDA XR [Suspect]
     Indication: DEMENTIA
     Dosage: 7 MG
     Route: 048
     Dates: start: 20131003, end: 20131009
  2. NAMENDA XR [Suspect]
     Indication: DEMENTIA
     Dosage: 14 MG
     Route: 048
     Dates: start: 20131010, end: 20131012
  3. VIT D [Suspect]
     Dosage: 1000 MCG
  4. VIT D [Suspect]
     Dosage: 5000 MCG
  5. XANAX [Concomitant]
     Dosage: NIGHTLY
  6. ELAVIL [Concomitant]
     Dosage: DAILY

REACTIONS (3)
  - Hypertension [Recovered/Resolved]
  - Unresponsive to stimuli [Recovered/Resolved]
  - Food aversion [Recovered/Resolved]
